FAERS Safety Report 7987255-1 (Version None)
Quarter: 2011Q4

REPORT INFORMATION
  Report Type: 
  Country: None (occurrence: None)
  Receive Date: 20111216
  Receipt Date: 20110325
  Transmission Date: 20120403
  Serious: No
  Sender: FDA-Public Use
  Company Number: US-BRISTOL-MYERS SQUIBB COMPANY-15636558

PATIENT
  Age: 71 Year
  Sex: Male
  Weight: 84 kg

DRUGS (2)
  1. PRISTIQ [Concomitant]
     Indication: DEPRESSION
  2. ABILIFY [Suspect]
     Indication: DEPRESSION
     Dosage: 1 DF = HALF OF AN ABILIFY 2MG
     Dates: start: 20110325

REACTIONS (1)
  - LISTLESS [None]
